FAERS Safety Report 14156725 (Version 2)
Quarter: 2017Q4

REPORT INFORMATION
  Report Type: Report from Study
  Country: None (occurrence: US)
  Receive Date: 20171103
  Receipt Date: 20171128
  Transmission Date: 20180321
  Serious: Yes (Other)
  Sender: FDA-Public Use
  Company Number: US-ABBVIE-17K-163-2149130-00

PATIENT
  Age: 53 Year
  Sex: Male

DRUGS (7)
  1. ANDROGEL [Suspect]
     Active Substance: TESTOSTERONE
     Indication: BLOOD TESTOSTERONE DECREASED
     Route: 061
     Dates: start: 20130306, end: 20130501
  2. RESTORIL [Concomitant]
     Active Substance: TEMAZEPAM
     Indication: INSOMNIA
  3. ANDROGEL [Suspect]
     Active Substance: TESTOSTERONE
     Dosage: 4 PUMPS PER DAY.
     Route: 061
     Dates: start: 201709
  4. ADVAIR DISKUS [Concomitant]
     Active Substance: FLUTICASONE PROPIONATE\SALMETEROL XINAFOATE
     Indication: ASTHMA
  5. PROZAC [Concomitant]
     Active Substance: FLUOXETINE HYDROCHLORIDE
     Indication: DEPRESSION
  6. ANDROGEL [Suspect]
     Active Substance: TESTOSTERONE
     Route: 061
     Dates: start: 201308
  7. ANDROGEL [Suspect]
     Active Substance: TESTOSTERONE
     Dosage: DUE TO GOING OUT OF THE COUNTRY.
     Route: 061
     Dates: start: 20130501, end: 201308

REACTIONS (5)
  - Meniscus injury [Recovered/Resolved]
  - Meniscus injury [Recovering/Resolving]
  - Blood testosterone abnormal [Not Recovered/Not Resolved]
  - Synovial cyst [Unknown]
  - Product packaging quantity issue [Recovered/Resolved]

NARRATIVE: CASE EVENT DATE: 20151124
